FAERS Safety Report 7495268-1 (Version None)
Quarter: 2011Q2

REPORT INFORMATION
  Report Type: 
  Country: None (occurrence: None)
  Receive Date: 20110523
  Receipt Date: 20110518
  Transmission Date: 20111010
  Serious: Yes (Hospitalization, Other)
  Sender: FDA-Public Use
  Company Number: US-AMGEN-USASP2011018288

PATIENT
  Age: 49 Year
  Sex: Female

DRUGS (11)
  1. CORTICOSTEROIDS [Concomitant]
  2. PREDNISONE [Concomitant]
     Dosage: 10 MG, QD
  3. SPIRONOLACTONE [Concomitant]
     Dosage: 25 MG, QD
  4. NPLATE [Suspect]
     Indication: IDIOPATHIC THROMBOCYTOPENIC PURPURA
     Dosage: 650 A?G, QWK
     Dates: start: 20101111
  5. CARVEDILOL [Concomitant]
     Dosage: 3.125 MG, BID
  6. LEVOTHYROXINE SODIUM [Concomitant]
     Dosage: 225 A?G, QD
  7. HYDRALAZINE HCL [Concomitant]
     Dosage: 12.5 MG, TID
  8. LEVEMIR [Concomitant]
     Dosage: 20 UNK, UNK
  9. NOVOLOG [Concomitant]
     Dosage: 4 UNK, UNK
  10. IVIGLOB-EX [Concomitant]
  11. IMDUR [Concomitant]
     Dosage: 30 MG, QD

REACTIONS (2)
  - CARDIAC FAILURE CONGESTIVE [None]
  - CARDIOMYOPATHY [None]
